FAERS Safety Report 5466135-X (Version None)
Quarter: 2007Q3

REPORT INFORMATION
  Report Type: 
  Country: None (occurrence: None)
  Receive Date: 20070924
  Receipt Date: 20070917
  Transmission Date: 20080115
  Serious: Yes (Other)
  Sender: FDA-Public Use
  Company Number: US-PFIZER INC-2006010927

PATIENT
  Sex: Female
  Weight: 46.3 kg

DRUGS (3)
  1. CELEBREX [Suspect]
     Indication: BACK INJURY
  2. VIOXX [Suspect]
     Indication: NECK PAIN
  3. VIOXX [Suspect]
     Indication: OSTEOARTHRITIS

REACTIONS (4)
  - AMNESIA [None]
  - CEREBROVASCULAR ACCIDENT [None]
  - CHEST PAIN [None]
  - DEPRESSION [None]
